FAERS Safety Report 18768289 (Version 1)
Quarter: 2021Q1

REPORT INFORMATION
  Report Type: Spontaneous
  Country: US (occurrence: US)
  Receive Date: 20210120
  Receipt Date: 20210120
  Transmission Date: 20210419
  Serious: Yes (Hospitalization)
  Sender: FDA-Public Use
  Company Number: None

PATIENT
  Age: 72 Year
  Sex: Male
  Weight: 97 kg

DRUGS (1)
  1. SIMVASTATIN (SIMVASTATIN 40MG TAB) [Suspect]
     Active Substance: SIMVASTATIN
     Indication: HYPERLIPIDAEMIA
     Route: 048
     Dates: start: 20080902, end: 20200716

REACTIONS (3)
  - Acute kidney injury [None]
  - Hepatic enzyme increased [None]
  - Rhabdomyolysis [None]

NARRATIVE: CASE EVENT DATE: 20200716
